FAERS Safety Report 21424098 (Version 2)
Quarter: 2022Q4

REPORT INFORMATION
  Report Type: Spontaneous
  Country: JP (occurrence: JP)
  Receive Date: 20221007
  Receipt Date: 20221206
  Transmission Date: 20230113
  Serious: Yes (Hospitalization, Other)
  Sender: FDA-Public Use
  Company Number: JP-MSD-M2022-38294

PATIENT
  Age: 69 Year
  Sex: Female

DRUGS (3)
  1. KEYTRUDA [Suspect]
     Active Substance: PEMBROLIZUMAB
     Indication: Uterine cancer
     Dosage: 200 MILLIGRAM, Q3W
     Route: 041
     Dates: start: 20220527, end: 20220912
  2. LENVATINIB MESYLATE [Suspect]
     Active Substance: LENVATINIB MESYLATE
     Indication: Uterine cancer
     Dosage: 20 MILLIGRAM, QD
     Route: 048
     Dates: start: 20220527, end: 2022
  3. LENVATINIB MESYLATE [Suspect]
     Active Substance: LENVATINIB MESYLATE
     Dosage: 14 MILLIGRAM, DAILY FOR 5 DAYS FROM CONSECUTIVE DAYS WITH A 2-DAY REST PERIOD
     Route: 048
     Dates: start: 2022, end: 202209

REACTIONS (16)
  - Decubitus ulcer [Recovered/Resolved]
  - Blood cholinesterase decreased [Unknown]
  - Pancreatitis [Recovered/Resolved]
  - Pneumocystis jirovecii pneumonia [Recovered/Resolved]
  - Pneumocystis jirovecii pneumonia [Recovered/Resolved]
  - Immune-mediated hypothyroidism [Recovered/Resolved]
  - Blood albumin decreased [Not Recovered/Not Resolved]
  - Hypertension [Recovered/Resolved]
  - Amylase increased [Unknown]
  - Amylase increased [Not Recovered/Not Resolved]
  - Rash [Unknown]
  - Hyponatraemia [Recovered/Resolved]
  - Skin disorder [Unknown]
  - Cortisol decreased [Unknown]
  - Lymphoedema [Not Recovered/Not Resolved]
  - Lymphorrhoea [Not Recovered/Not Resolved]

NARRATIVE: CASE EVENT DATE: 20220601
